FAERS Safety Report 7360888-1 (Version None)
Quarter: 2011Q1

REPORT INFORMATION
  Report Type: 
  Country: None (occurrence: None)
  Receive Date: 20110315
  Receipt Date: 20110315
  Transmission Date: 20110831
  Serious: Yes (Other)
  Sender: FDA-Public Use
  Company Number: None

PATIENT
  Age: 47 Year
  Sex: Female
  Weight: 65.7716 kg

DRUGS (1)
  1. MONISTAT 7 [Suspect]
     Indication: FUNGAL INFECTION
     Dosage: 100 MG ONCE A DAY VAG
     Route: 067
     Dates: start: 20110308, end: 20110311

REACTIONS (5)
  - PAIN [None]
  - INSOMNIA [None]
  - BURNING SENSATION [None]
  - GASTRIC DISORDER [None]
  - PRURITUS [None]
